FAERS Safety Report 8384049-2 (Version None)
Quarter: 2012Q2

REPORT INFORMATION
  Report Type: 
  Country: None (occurrence: None)
  Receive Date: 20120524
  Receipt Date: 20120515
  Transmission Date: 20120825
  Serious: Yes (Other)
  Sender: FDA-Public Use
  Company Number: JP-VERTEX PHARMACEUTICALS INC.-AE-2012-007447

PATIENT
  Age: 62 Year
  Sex: Male

DRUGS (3)
  1. REBETOL [Concomitant]
     Route: 048
     Dates: start: 20120508
  2. PEG-INTRON [Concomitant]
     Route: 051
     Dates: start: 20120508
  3. TELAVIC (TELAPREVIR) [Suspect]
     Route: 048
     Dates: start: 20120508, end: 20120512

REACTIONS (2)
  - BLOOD CREATININE INCREASED [None]
  - DRUG ERUPTION [None]
